FAERS Safety Report 11447943 (Version 1)
Quarter: 2015Q3

REPORT INFORMATION
  Report Type: Spontaneous
  Country: US (occurrence: US)
  Receive Date: 20150831
  Receipt Date: 20150831
  Transmission Date: 20151125
  Serious: No
  Sender: FDA-Public Use
  Company Number: US-ELI_LILLY_AND_COMPANY-US200905001008

PATIENT
  Age: 61 Year
  Sex: Female

DRUGS (16)
  1. CLONAZEPAM. [Concomitant]
     Active Substance: CLONAZEPAM
     Dosage: 1 MG, EACH EVENING
  2. PROPOXYPHENE HYDROCHLORIDE W/PARACETAMOL [Concomitant]
     Active Substance: ACETAMINOPHEN\PROPOXYPHENE HYDROCHLORIDE
     Dosage: 1 D/F, AS NEEDED
  3. PREMARIN [Concomitant]
     Active Substance: ESTROGENS, CONJUGATED
     Dosage: 0.062 MG, 2/W
  4. ARTIFICIAL TEARS [Concomitant]
     Active Substance: GLYCERIN\HYPROMELLOSES\POLYETHYLENE GLYCOL 400
     Dosage: 1 D/F, AS NEEDED
  5. VITAMINS NOS [Concomitant]
     Active Substance: VITAMINS
     Dosage: 100 MG, DAILY (1/D)
  6. ALENDRONATE SODIUM. [Concomitant]
     Active Substance: ALENDRONATE SODIUM
     Dosage: 1 D/F, WEEKLY (1/W)
  7. CENTRUM SILVER [Concomitant]
     Active Substance: VITAMINS
     Dosage: 1 D/F, DAILY (1/D)
  8. TRAZODONE [Concomitant]
     Active Substance: TRAZODONE HYDROCHLORIDE
     Dosage: 100 MG, EACH EVENING
  9. ROPINIROLE. [Concomitant]
     Active Substance: ROPINIROLE
     Dosage: 1 MG, EACH EVENING
  10. PERIDEX [Concomitant]
     Active Substance: CHLORHEXIDINE GLUCONATE
     Dosage: 1 D/F, AS NEEDED
  11. CYMBALTA [Suspect]
     Active Substance: DULOXETINE HYDROCHLORIDE
     Dosage: 60 MG, EACH EVENING
  12. VITAMIN D [Concomitant]
     Active Substance: CHOLECALCIFEROL
     Dosage: 1000 MG, DAILY (1/D)
  13. FOLIC ACID. [Concomitant]
     Active Substance: FOLIC ACID
     Dosage: 2 MG, DAILY (1/D)
  14. LYRICA [Concomitant]
     Active Substance: PREGABALIN
     Dosage: 150 MG, 2/D
  15. METHOTREXATE (METHOTREXATE SODIUM) [Concomitant]
     Active Substance: METHOTREXATE SODIUM
     Dosage: 3 ML, WEEKLY (1/W)
  16. BIOTENE [Concomitant]
     Dosage: 1 D/F, AS NEEDED

REACTIONS (1)
  - Precancerous cells present [Unknown]
